FAERS Safety Report 14328741 (Version 4)
Quarter: 2019Q1

REPORT INFORMATION
  Report Type: Spontaneous
  Country: DE (occurrence: DE)
  Receive Date: 20171227
  Receipt Date: 20190104
  Transmission Date: 20190417
  Serious: Yes (Hospitalization, Other)
  Sender: FDA-Public Use
  Company Number: DE-MYLANLABS-2017M1082317

PATIENT
  Age: 43 Year
  Sex: Female

DRUGS (3)
  1. PREGABALIN. [Interacting]
     Active Substance: PREGABALIN
     Indication: HYPERTENSION
     Dosage: 100 MG, UNK
  2. PANTOPRAZOLE [Suspect]
     Active Substance: PANTOPRAZOLE
     Indication: HYPERTENSION
     Dosage: 40 MG, UNK
     Route: 065
  3. DULOXETINE. [Interacting]
     Active Substance: DULOXETINE
     Indication: HYPERTENSION
     Dosage: 60 MG, UNK

REACTIONS (4)
  - Alanine aminotransferase increased [Unknown]
  - Drug interaction [Unknown]
  - Hepatotoxicity [Unknown]
  - Aspartate aminotransferase increased [Unknown]
